FAERS Safety Report 5638314-X (Version None)
Quarter: 2008Q1

REPORT INFORMATION
  Report Type: 
  Country: None (occurrence: None)
  Receive Date: 20080226
  Receipt Date: 20080213
  Transmission Date: 20080703
  Serious: Yes (Hospitalization, Other)
  Sender: FDA-Public Use
  Company Number: US-AMGEN-QUU251728

PATIENT
  Sex: Female
  Weight: 54 kg

DRUGS (2)
  1. ENBREL [Suspect]
     Indication: JUVENILE ARTHRITIS
     Route: 058
     Dates: start: 19990401
  2. ZYRTEC [Concomitant]

REACTIONS (8)
  - ARTHRALGIA [None]
  - DEHYDRATION [None]
  - DIABETIC KETOACIDOSIS [None]
  - OSTEOPENIA [None]
  - POLLAKIURIA [None]
  - TYPE 1 DIABETES MELLITUS [None]
  - VIRAL INFECTION [None]
  - VOMITING [None]
